FAERS Safety Report 7786401-2 (Version None)
Quarter: 2011Q3

REPORT INFORMATION
  Report Type: 
  Country: None (occurrence: None)
  Receive Date: 20110928
  Receipt Date: 20110928
  Transmission Date: 20111222
  Serious: Yes (Hospitalization, Disabling)
  Sender: FDA-Public Use
  Company Number: None

PATIENT
  Sex: Female
  Weight: 77.1115 kg

DRUGS (1)
  1. PAXIL [Suspect]
     Indication: POST-TRAUMATIC STRESS DISORDER
     Dosage: 20 MG 1 X A DAY
     Dates: start: 20110523, end: 20110801

REACTIONS (5)
  - INFLUENZA LIKE ILLNESS [None]
  - MALAISE [None]
  - COLITIS [None]
  - WEIGHT DECREASED [None]
  - NO THERAPEUTIC RESPONSE [None]
